FAERS Safety Report 7599827-7 (Version None)
Quarter: 2011Q2

REPORT INFORMATION
  Report Type: 
  Country: None (occurrence: None)
  Receive Date: 20110629
  Receipt Date: 20110623
  Transmission Date: 20111010
  Serious: Yes (Other)
  Sender: FDA-Public Use
  Company Number: BR-001743

PATIENT
  Sex: Male

DRUGS (1)
  1. NAGLAZYME [Suspect]
     Indication: MUCOPOLYSACCHARIDOSIS VI
     Dosage: INTRAVENOUS DRIP
     Route: 041

REACTIONS (6)
  - SPINAL CORD COMPRESSION [None]
  - JOINT DISLOCATION [None]
  - CERVICAL SPINAL STENOSIS [None]
  - MYELOMALACIA [None]
  - JOINT INSTABILITY [None]
  - PAIN IN EXTREMITY [None]
